FAERS Safety Report 4526855-8 (Version None)
Quarter: 2004Q4

REPORT INFORMATION
  Report Type: 
  Country: None (occurrence: None)
  Receive Date: 20041213
  Receipt Date: 20041206
  Transmission Date: 20050328
  Serious: Yes (Congenital Anomaly)
  Sender: FDA-Public Use
  Company Number: K200401849

PATIENT
  Sex: 0

DRUGS (2)
  1. NORDETTE-21 [Suspect]
     Dosage: TRANSPLACENTAL
     Route: 064
  2. LEVONELLE (LEVONORGESTREL) [Suspect]
     Dosage: TRANSPLACENTAL
     Route: 064
     Dates: start: 20020703

REACTIONS (7)
  - ABDOMINAL WALL ANOMALY [None]
  - ARM AMPUTATION [None]
  - DEFORMITY THORAX [None]
  - DRUG EXPOSURE DURING PREGNANCY [None]
  - PREGNANCY ON ORAL CONTRACEPTIVE [None]
  - RIB HYPOPLASIA [None]
  - SCOLIOSIS [None]
